FAERS Safety Report 4797220-3 (Version None)
Quarter: 2005Q3

REPORT INFORMATION
  Report Type: 
  Country: None (occurrence: None)
  Receive Date: 20050916
  Receipt Date: 20050415
  Transmission Date: 20060218
  Serious: Yes (Other)
  Sender: FDA-Public Use
  Company Number: US-JNJFOC-20050404123

PATIENT
  Sex: Female

DRUGS (8)
  1. TOPAMAX [Suspect]
     Indication: MIGRAINE
     Dosage: 100 MG, 3 IN 1 DAY
  2. IMITREX (SUMMATRIPTAN) [Concomitant]
  3. PRAVACHOL [Concomitant]
  4. FOLIC ACID [Concomitant]
  5. METHOTREXATE [Concomitant]
  6. LORCET-HD [Concomitant]
  7. MAGNESIUM (MAGNESIUM) [Concomitant]
  8. K-DUR 10 [Concomitant]

REACTIONS (2)
  - HYPOKALAEMIA [None]
  - WEIGHT DECREASED [None]
